FAERS Safety Report 5750960-1 (Version None)
Quarter: 2008Q2

REPORT INFORMATION
  Report Type: 
  Country: None (occurrence: None)
  Receive Date: 20080528
  Receipt Date: 20080520
  Transmission Date: 20081010
  Serious: Yes (Hospitalization, Other)
  Sender: FDA-Public Use
  Company Number: US-MERCK-0705USA02825

PATIENT
  Age: 65 Year
  Sex: Female
  Weight: 45 kg

DRUGS (3)
  1. FOSAMAX [Suspect]
     Indication: OSTEOPOROSIS
     Route: 048
     Dates: start: 19950101
  2. FOSAMAX [Suspect]
     Route: 048
     Dates: end: 20040101
  3. FOSAMAX [Suspect]
     Route: 048
     Dates: end: 20060501

REACTIONS (23)
  - ADVERSE EVENT [None]
  - CANDIDIASIS [None]
  - CRYOGLOBULINAEMIA [None]
  - DEPRESSION [None]
  - EPISTAXIS [None]
  - GLOSSITIS [None]
  - HEPATITIS C [None]
  - INAPPROPRIATE SCHEDULE OF DRUG ADMINISTRATION [None]
  - INSOMNIA [None]
  - INTERVERTEBRAL DISC DEGENERATION [None]
  - LEUKOCYTOCLASTIC VASCULITIS [None]
  - LIMB DISCOMFORT [None]
  - LYMPHADENOPATHY [None]
  - MUSCULOSKELETAL CHEST PAIN [None]
  - NAUSEA [None]
  - OEDEMA PERIPHERAL [None]
  - ORAL PAIN [None]
  - OSTEOMYELITIS [None]
  - OSTEONECROSIS [None]
  - PAIN [None]
  - RASH [None]
  - TONGUE GEOGRAPHIC [None]
  - TOOTH FRACTURE [None]
